FAERS Safety Report 4869056-6 (Version None)
Quarter: 2005Q4

REPORT INFORMATION
  Report Type: 
  Country: None (occurrence: None)
  Receive Date: 20051221
  Receipt Date: 20051214
  Transmission Date: 20060501
  Serious: Yes (Hospitalization)
  Sender: FDA-Public Use
  Company Number: 200511007BVD

PATIENT
  Age: 76 Year
  Sex: Male
  Weight: 68 kg

DRUGS (18)
  1. GAMUNEX [Suspect]
     Indication: AUTOIMMUNE DISORDER
     Dosage: SEE IMAGE
     Route: 042
     Dates: start: 20050711
  2. GAMUNEX [Suspect]
     Indication: AUTOIMMUNE DISORDER
     Dosage: SEE IMAGE
     Route: 042
     Dates: start: 20050712
  3. GAMUNEX [Suspect]
     Indication: AUTOIMMUNE DISORDER
     Dosage: SEE IMAGE
     Route: 042
     Dates: start: 20050713
  4. GAMUNEX [Suspect]
     Indication: AUTOIMMUNE DISORDER
     Dosage: SEE IMAGE
     Route: 042
     Dates: start: 20050714
  5. GAMUNEX [Suspect]
     Indication: AUTOIMMUNE DISORDER
     Dosage: SEE IMAGE
     Route: 042
     Dates: start: 20050715
  6. GAMUNEX [Suspect]
  7. GAMUNEX [Suspect]
  8. GAMUNEX [Suspect]
  9. GAMUNEX [Suspect]
  10. GAMUNEX [Suspect]
  11. DECORTIN [Concomitant]
  12. THEOPHYLLINE [Concomitant]
  13. CORIFEO [Concomitant]
  14. MCP [Concomitant]
  15. TRAMAL [Concomitant]
  16. PENTAERYTHRITOL TETRANITRATE [Concomitant]
  17. NEXIUM [Concomitant]
  18. ANTRA [Concomitant]

REACTIONS (1)
  - ACUTE CORONARY SYNDROME [None]
